FAERS Safety Report 24793197 (Version 1)
Quarter: 2024Q4

REPORT INFORMATION
  Report Type: Report from Study
  Country: TW (occurrence: TW)
  Receive Date: 20241231
  Receipt Date: 20241231
  Transmission Date: 20250115
  Serious: Yes (Hospitalization)
  Sender: REGENERON
  Company Number: TW-BAYER-2024A182297

PATIENT
  Sex: Female

DRUGS (1)
  1. EYLEA [Suspect]
     Active Substance: AFLIBERCEPT
     Indication: Neovascular age-related macular degeneration
     Dosage: STRENGTH: 40 MG/ML

REACTIONS (2)
  - Anaesthesia procedure [Unknown]
  - Anaesthesia procedure [Unknown]

NARRATIVE: CASE EVENT DATE: 20240101
